FAERS Safety Report 9315242 (Version 1)
Quarter: 2013Q2

REPORT INFORMATION
  Report Type: Spontaneous
  Country: US (occurrence: US)
  Receive Date: 20130529
  Receipt Date: 20130529
  Transmission Date: 20140414
  Serious: Yes (Hospitalization, Other)
  Sender: FDA-Public Use
  Company Number: US201002003680

PATIENT
  Age: 43 Year
  Sex: Male
  Weight: 106.12 kg

DRUGS (9)
  1. BYETTA [Suspect]
     Route: 058
     Dates: start: 200808, end: 20081231
  2. EXENATIDE UNK STRENGTH PEN, DISPOSABLE DEVICE [Concomitant]
  3. METFORMIN [Concomitant]
  4. PROTONIX [Concomitant]
  5. CRESTOR [Concomitant]
  6. RAMIPRIL [Concomitant]
  7. PERCOCET [Concomitant]
     Indication: PAIN
  8. ZOFRAN [Concomitant]
  9. DILAUDID [Concomitant]

REACTIONS (3)
  - Pancreatitis chronic [Not Recovered/Not Resolved]
  - Pancreatitis [Unknown]
  - Off label use [Recovered/Resolved]
